FAERS Safety Report 26072123 (Version 1)
Quarter: 2025Q4

REPORT INFORMATION
  Report Type: Spontaneous
  Country: US (occurrence: US)
  Receive Date: 20251120
  Receipt Date: 20251120
  Transmission Date: 20260119
  Serious: Yes (Other)
  Sender: NOVO NORDISK
  Company Number: US-NOVOPROD-1567920

PATIENT
  Age: 78 Year
  Sex: Male
  Weight: 100.7 kg

DRUGS (4)
  1. TRESIBA [Suspect]
     Active Substance: INSULIN DEGLUDEC
     Indication: Type 2 diabetes mellitus
     Dosage: 50 IU, QD
     Route: 058
     Dates: start: 20170323
  2. TRESIBA [Suspect]
     Active Substance: INSULIN DEGLUDEC
     Dosage: MORE THAN 74 UNITS LIKE 74- 80
     Dates: start: 20170323
  3. VICTOZA [Suspect]
     Active Substance: LIRAGLUTIDE
     Indication: Type 2 diabetes mellitus
     Dosage: 0.6 MG
     Route: 058
     Dates: start: 20180526, end: 20190625
  4. VICTOZA [Suspect]
     Active Substance: LIRAGLUTIDE
     Dosage: 1.2 MG
     Route: 058

REACTIONS (2)
  - Prostate cancer [Not Recovered/Not Resolved]
  - Hot flush [Unknown]
